FAERS Safety Report 6120342-1 (Version None)
Quarter: 2009Q1

REPORT INFORMATION
  Report Type: 
  Country: None (occurrence: None)
  Receive Date: 20090317
  Receipt Date: 20090303
  Transmission Date: 20090719
  Serious: Yes (Hospitalization)
  Sender: FDA-Public Use
  Company Number: AT-RANBAXY-2009RR-22456

PATIENT
  Age: 87 Year
  Sex: Female
  Weight: 87 kg

DRUGS (18)
  1. GABAPENTIN [Suspect]
     Dosage: 300 MG, QID
  2. AVELOX [Suspect]
  3. LANSOPRAZOLE [Concomitant]
     Dosage: UNK
  4. NICORANDIL [Concomitant]
  5. DICLOFENAC SODIUM [Concomitant]
     Dosage: 500 MG, UNK
  6. DEXAMETHASONE [Concomitant]
  7. NIFEDIPINE [Concomitant]
     Dosage: 60 MG, UNK
  8. SODIUM PICOSULFATE [Concomitant]
  9. HYDROMORPHONE HYDROCHLORIDE [Concomitant]
     Dosage: UNK
  10. LACTULOSE [Concomitant]
     Dosage: 30 ML, QD
  11. FUROSEMIDE [Concomitant]
  12. NITROGLYCERIN [Concomitant]
  13. METAMIZOLE SODIUM [Concomitant]
  14. METOCLOPRAMIDE HYDROCHLORIDE [Concomitant]
  15. METOPROLOL SUCCINATE [Concomitant]
  16. ACENOCOUMAROL [Concomitant]
  17. ATORVASTATIN [Concomitant]
     Dosage: 10 MG, UNK
  18. LORAZEPAM [Concomitant]
     Dosage: 1 MG, UNK

REACTIONS (2)
  - DYSKINESIA [None]
  - NEUTROPENIA [None]
